FAERS Safety Report 18567471 (Version 1)
Quarter: 2020Q4

REPORT INFORMATION
  Report Type: Spontaneous
  Country: FR (occurrence: FR)
  Receive Date: 20201201
  Receipt Date: 20201201
  Transmission Date: 20210114
  Serious: Yes (Hospitalization)
  Sender: FDA-Public Use
  Company Number: FR-JNJFOC-20201146162

PATIENT
  Age: 69 Year
  Sex: Female
  Weight: 68 kg

DRUGS (2)
  1. REMICADE [Suspect]
     Active Substance: INFLIXIMAB
     Indication: ANKYLOSING SPONDYLITIS
     Route: 042
  2. NOVATREX (METHOTREXATE) [Suspect]
     Active Substance: METHOTREXATE SODIUM
     Indication: ANKYLOSING SPONDYLITIS
     Route: 048

REACTIONS (1)
  - Endophthalmitis [Recovering/Resolving]

NARRATIVE: CASE EVENT DATE: 20200820
